FAERS Safety Report 7062021-2 (Version None)
Quarter: 2010Q4

REPORT INFORMATION
  Report Type: 
  Country: None (occurrence: None)
  Receive Date: 20101026
  Receipt Date: 20101020
  Transmission Date: 20110411
  Serious: Yes (Hospitalization)
  Sender: FDA-Public Use
  Company Number: A0799953A

PATIENT
  Age: 54 Year
  Sex: Male
  Weight: 144.1 kg

DRUGS (9)
  1. AVANDIA [Suspect]
     Indication: DIABETES MELLITUS
     Dosage: 4MG TWICE PER DAY
     Route: 048
     Dates: start: 20031201, end: 20070401
  2. AVANDAMET [Suspect]
     Indication: DIABETES MELLITUS
     Route: 048
     Dates: start: 20050101, end: 20050101
  3. PROTONIX [Concomitant]
  4. INSULIN [Concomitant]
  5. TRICOR [Concomitant]
  6. CELEBREX [Concomitant]
  7. ATENOLOL [Concomitant]
  8. GLUCOTROL [Concomitant]
  9. GLUCOPHAGE [Concomitant]

REACTIONS (3)
  - ARTHRITIS [None]
  - FOOT FRACTURE [None]
  - FRACTURE NONUNION [None]
